FAERS Safety Report 7236713-6 (Version None)
Quarter: 2011Q1

REPORT INFORMATION
  Report Type: 
  Country: None (occurrence: None)
  Receive Date: 20110120
  Receipt Date: 20110112
  Transmission Date: 20110831
  Serious: Yes (Death)
  Sender: FDA-Public Use
  Company Number: NL-BAXTER-2011BH001252

PATIENT
  Age: 68 Year

DRUGS (1)
  1. RECOMBINANT FACTOR VIII, UNSPECIFIED [Suspect]
     Indication: FACTOR VIII DEFICIENCY
     Route: 065

REACTIONS (3)
  - FACTOR VIII INHIBITION [None]
  - HAEMORRHAGE [None]
  - SEPSIS [None]
